FAERS Safety Report 11703876 (Version 1)
Quarter: 2015Q4

REPORT INFORMATION
  Report Type: Spontaneous
  Country: US (occurrence: US)
  Receive Date: 20151106
  Receipt Date: 20151106
  Transmission Date: 20160304
  Serious: No
  Sender: FDA-Public Use
  Company Number: US-009507513-1510USA012267

PATIENT
  Sex: Female

DRUGS (1)
  1. NUVARING [Suspect]
     Active Substance: ETHINYL ESTRADIOL\ETONOGESTREL
     Dosage: UNKNOWN
     Route: 067
     Dates: start: 2010

REACTIONS (2)
  - Incorrect drug administration duration [Unknown]
  - Abnormal withdrawal bleeding [Not Recovered/Not Resolved]

NARRATIVE: CASE EVENT DATE: 201509
